FAERS Safety Report 21038069 (Version 2)
Quarter: 2022Q3

REPORT INFORMATION
  Report Type: Spontaneous
  Country: US (occurrence: US)
  Receive Date: 20220704
  Receipt Date: 20220831
  Transmission Date: 20221026
  Serious: Yes (Other)
  Sender: FDA-Public Use
  Company Number: US-JNJFOC-20220702568

PATIENT
  Sex: Female

DRUGS (4)
  1. ELMIRON [Suspect]
     Active Substance: PENTOSAN POLYSULFATE SODIUM
     Indication: Cystitis interstitial
     Route: 048
     Dates: start: 200801, end: 202106
  2. ELMIRON [Suspect]
     Active Substance: PENTOSAN POLYSULFATE SODIUM
     Route: 048
     Dates: end: 202111
  3. HYDROCODONE [Concomitant]
     Active Substance: HYDROCODONE
     Indication: Back disorder
     Dates: start: 2008
  4. HYDROCODONE [Concomitant]
     Active Substance: HYDROCODONE
     Indication: Cystitis interstitial

REACTIONS (2)
  - Retinal injury [Not Recovered/Not Resolved]
  - Retinal pigmentation [Unknown]
